FAERS Safety Report 24763263 (Version 2)
Quarter: 2025Q1

REPORT INFORMATION
  Report Type: Spontaneous
  Country: US (occurrence: US)
  Receive Date: 20241222
  Receipt Date: 20250102
  Transmission Date: 20250409
  Serious: No
  Sender: BAUSCH AND LOMB
  Company Number: US-BAUSCHBL-2024BNL038800

PATIENT
  Age: 83 Year
  Sex: Female

DRUGS (4)
  1. XIIDRA [Suspect]
     Active Substance: LIFITEGRAST
     Indication: Dry eye
     Dosage: 1 DROP INTO EACH EYE TWICE DAILY
     Route: 047
     Dates: start: 202403
  2. ERYTHROMYCIN [Suspect]
     Active Substance: ERYTHROMYCIN
     Indication: Product used for unknown indication
     Route: 047
  3. TETRAHYDROZOLINE HYDROCHLORIDE [Suspect]
     Active Substance: TETRAHYDROZOLINE HYDROCHLORIDE
     Indication: Product used for unknown indication
     Route: 065
  4. LOTEPREDNOL (AKORN) [Concomitant]
     Indication: Product used for unknown indication

REACTIONS (10)
  - Eye irritation [Unknown]
  - Vision blurred [Unknown]
  - Eye infection [Unknown]
  - Erythema of eyelid [Unknown]
  - Drug ineffective [Unknown]
  - Condition aggravated [Unknown]
  - Product container issue [Unknown]
  - Product packaging issue [Unknown]
  - Circumstance or information capable of leading to medication error [Unknown]
  - Product use complaint [Unknown]

NARRATIVE: CASE EVENT DATE: 20240101
